FAERS Safety Report 22039759 (Version 2)
Quarter: 2023Q1

REPORT INFORMATION
  Report Type: Spontaneous
  Country: US (occurrence: US)
  Receive Date: 20230227
  Receipt Date: 20230314
  Transmission Date: 20230418
  Serious: No
  Sender: FDA-Public Use
  Company Number: US-PFIZER INC-PV202300033136

PATIENT
  Age: 71 Year
  Sex: Female

DRUGS (1)
  1. XELJANZ XR [Suspect]
     Active Substance: TOFACITINIB CITRATE
     Dosage: UNK
     Dates: end: 20230210

REACTIONS (7)
  - Nasopharyngitis [Unknown]
  - Epistaxis [Unknown]
  - Muscle spasms [Unknown]
  - Balance disorder [Unknown]
  - Bronchitis [Unknown]
  - Dyspnoea [Unknown]
  - Chills [Unknown]
